FAERS Safety Report 18725169 (Version 1)
Quarter: 2021Q1

REPORT INFORMATION
  Report Type: Report from Study
  Country: US (occurrence: US)
  Receive Date: 20210111
  Receipt Date: 20210111
  Transmission Date: 20210419
  Serious: Yes (Disabling)
  Sender: FDA-Public Use
  Company Number: US-GILEAD-2021-0511898

PATIENT
  Sex: Male

DRUGS (1)
  1. TENOFOVIR ALAFENAMIDE [Suspect]
     Active Substance: TENOFOVIR ALAFENAMIDE
     Indication: HIV INFECTION
     Dosage: 25MG, ORAL, ONCE DAILY
     Route: 048

REACTIONS (4)
  - Diarrhoea [Unknown]
  - Nervous system disorder [Unknown]
  - Off label use [Unknown]
  - Product dose omission issue [Unknown]
